FAERS Safety Report 15640931 (Version 1)
Quarter: 2018Q4

REPORT INFORMATION
  Report Type: Spontaneous
  Country: PL (occurrence: PL)
  Receive Date: 20181120
  Receipt Date: 20181120
  Transmission Date: 20190205
  Serious: Yes (Death, Other)
  Sender: FDA-Public Use
  Company Number: PL-SHIRE-PL201844556

PATIENT

DRUGS (1)
  1. HUMAN ALBUMIN [Suspect]
     Active Substance: ALBUMIN HUMAN
     Indication: PRODUCT USED FOR UNKNOWN INDICATION
     Route: 065

REACTIONS (5)
  - Intraventricular haemorrhage neonatal [Fatal]
  - Premature baby [Fatal]
  - Death neonatal [Fatal]
  - Circulatory failure neonatal [Fatal]
  - Foetal exposure during pregnancy [Recovered/Resolved]
